FAERS Safety Report 6971914-3 (Version None)
Quarter: 2010Q3

REPORT INFORMATION
  Report Type: 
  Country: None (occurrence: None)
  Receive Date: 20100908
  Receipt Date: 20100908
  Transmission Date: 20110219
  Serious: Yes (Life-Threatening, Hospitalization)
  Sender: FDA-Public Use
  Company Number: None

PATIENT
  Age: 64 Year
  Sex: Male
  Weight: 84.369 kg

DRUGS (1)
  1. FEBOXSTAT 40 MG TAKEDA [Suspect]
     Indication: GOUT
     Dates: start: 20091103, end: 20100618

REACTIONS (4)
  - ASTHENIA [None]
  - DIARRHOEA [None]
  - HEPATIC FAILURE [None]
  - PRURITUS [None]
